FAERS Safety Report 5820910-8 (Version None)
Quarter: 2008Q3

REPORT INFORMATION
  Report Type: 
  Country: None (occurrence: None)
  Receive Date: 20080722
  Receipt Date: 20080716
  Transmission Date: 20090109
  Serious: Yes (Other)
  Sender: FDA-Public Use
  Company Number: 2008SP010064

PATIENT
  Age: 58 Year
  Sex: Female

DRUGS (3)
  1. PEG-INTRON [Suspect]
     Dates: start: 20080101
  2. PEG-INTRON [Suspect]
     Dates: start: 20080331
  3. REBETOL [Suspect]
     Indication: HEPATITIS C
     Dosage: PO
     Route: 048
     Dates: start: 20080331

REACTIONS (18)
  - ANAEMIA [None]
  - ANXIETY [None]
  - BLOOD IRON DECREASED [None]
  - BONE PAIN [None]
  - DECREASED APPETITE [None]
  - DEHYDRATION [None]
  - DIZZINESS [None]
  - DRY THROAT [None]
  - FALL [None]
  - FATIGUE [None]
  - FEAR [None]
  - GAIT DISTURBANCE [None]
  - HEADACHE [None]
  - INSOMNIA [None]
  - JAUNDICE [None]
  - MALAISE [None]
  - NAUSEA [None]
  - POLLAKIURIA [None]
